FAERS Safety Report 5256226-0 (Version None)
Quarter: 2007Q1

REPORT INFORMATION
  Report Type: 
  Country: None (occurrence: None)
  Receive Date: 20070302
  Receipt Date: 20070302
  Transmission Date: 20070707
  Serious: Yes (Hospitalization)
  Sender: FDA-Public Use
  Company Number: None

PATIENT
  Sex: Female

DRUGS (1)
  1. LISINOPRIL [Suspect]
     Dosage: 10MG Q DAILY PO
     Route: 048

REACTIONS (4)
  - BLOOD CREATININE INCREASED [None]
  - DRUG HYPERSENSITIVITY [None]
  - HYPOTENSION [None]
  - SEPSIS [None]
